FAERS Safety Report 6832690-8 (Version None)
Quarter: 2010Q3

REPORT INFORMATION
  Report Type: 
  Country: None (occurrence: None)
  Receive Date: 20100712
  Receipt Date: 20070518
  Transmission Date: 20110219
  Serious: No
  Sender: FDA-Public Use
  Company Number: US-PFIZER INC-2007020783

PATIENT
  Sex: Male
  Weight: 88.5 kg

DRUGS (4)
  1. CHANTIX [Suspect]
     Indication: SMOKING CESSATION THERAPY
     Route: 048
     Dates: start: 20070201, end: 20070301
  2. ANTIBIOTICS [Suspect]
     Indication: GASTRIC DISORDER
     Dates: start: 20070101, end: 20070101
  3. ALLERGY MEDICATION [Concomitant]
  4. VITAMINS [Concomitant]

REACTIONS (3)
  - GASTRIC DISORDER [None]
  - HYPERSENSITIVITY [None]
  - INSOMNIA [None]
